FAERS Safety Report 6849615-1 (Version None)
Quarter: 2010Q3

REPORT INFORMATION
  Report Type: 
  Country: None (occurrence: None)
  Receive Date: 20100716
  Receipt Date: 20071129
  Transmission Date: 20110219
  Serious: No
  Sender: FDA-Public Use
  Company Number: US-PFIZER INC-2007083429

PATIENT
  Sex: Male
  Weight: 86.4 kg

DRUGS (1)
  1. CHANTIX [Suspect]
     Indication: SMOKING CESSATION THERAPY
     Dates: start: 20070901, end: 20070901

REACTIONS (3)
  - ABNORMAL DREAMS [None]
  - DRUG INTOLERANCE [None]
  - PSYCHOMOTOR HYPERACTIVITY [None]
